FAERS Safety Report 6015267-6 (Version None)
Quarter: 2008Q4

REPORT INFORMATION
  Report Type: 
  Country: None (occurrence: None)
  Receive Date: 20081222
  Receipt Date: 20081215
  Transmission Date: 20090506
  Serious: Yes (Life-Threatening, Hospitalization, Other)
  Sender: FDA-Public Use
  Company Number: FR-NOVOPROD-281526

PATIENT
  Age: 71 Year
  Sex: Female
  Weight: 59 kg

DRUGS (3)
  1. ACTRAPID [Suspect]
     Indication: HYPERGLYCAEMIA
     Route: 058
     Dates: start: 20081001
  2. ACTRAPID [Suspect]
     Dosage: AS TREATMENT OF HYPERGLYCAEMIA
     Dates: start: 20081016, end: 20081016
  3. IMMUNE GLOBULIN NOS [Concomitant]
     Indication: IMMUNODEFICIENCY

REACTIONS (6)
  - CONFUSIONAL STATE [None]
  - HYPERGLYCAEMIA [None]
  - HYPOGLYCAEMIA [None]
  - HYPOGLYCAEMIC COMA [None]
  - HYPOTHERMIA [None]
  - PSYCHOMOTOR RETARDATION [None]
